FAERS Safety Report 17409722 (Version 2)
Quarter: 2020Q1

REPORT INFORMATION
  Report Type: Report from Study
  Country: US (occurrence: US)
  Receive Date: 20200212
  Receipt Date: 20200224
  Transmission Date: 20200409
  Serious: Yes (Hospitalization, Other)
  Sender: FDA-Public Use
  Company Number: US-ACTELION-A-NJ2018-173905

PATIENT
  Sex: Female
  Weight: 77.1 kg

DRUGS (4)
  1. METOPROLOL. [Concomitant]
     Active Substance: METOPROLOL
     Dosage: 0.5 MG, QD
  2. VELETRI [Suspect]
     Active Substance: EPOPROSTENOL
     Indication: PULMONARY HYPERTENSION
     Dosage: 25.25 NG/KG, PER MIN
     Route: 042
  3. OXYGEN. [Concomitant]
     Active Substance: OXYGEN
  4. ADCIRCA [Concomitant]
     Active Substance: TADALAFIL

REACTIONS (18)
  - Asthenia [Unknown]
  - Oxygen saturation decreased [Unknown]
  - Pallor [Unknown]
  - Hyperhidrosis [Unknown]
  - Pain in jaw [Unknown]
  - Rash erythematous [Unknown]
  - Anaemia [Unknown]
  - Dyspnoea [Unknown]
  - Diarrhoea [Unknown]
  - Erosive duodenitis [Unknown]
  - Malaise [Unknown]
  - Dyspnoea exertional [Unknown]
  - Haematemesis [Unknown]
  - Hepatic cirrhosis [Unknown]
  - Blood iron decreased [Unknown]
  - Intra-abdominal pressure increased [Unknown]
  - Hypotension [Unknown]
  - Device occlusion [Unknown]
